FAERS Safety Report 8183221-4 (Version None)
Quarter: 2012Q1

REPORT INFORMATION
  Report Type: 
  Country: None (occurrence: None)
  Receive Date: 20120127
  Receipt Date: 20110727
  Transmission Date: 20120608
  Serious: Yes (Hospitalization)
  Sender: FDA-Public Use
  Company Number: 1000022521

PATIENT
  Age: 68 Year
  Sex: Male

DRUGS (7)
  1. - [Concomitant]
  2. BSYSTOLIC (NEBIVOLOL HYDROCHLORIDE) (TABLETS) [Suspect]
     Indication: HYPERTENSION
     Dosage: 10 MG (10 MG, 1 IN 1 D) ORAL
     Route: 048
     Dates: start: 20110629, end: 20110701
  3. HYDROCODONE/ACETAMINOPHEN (HYDROCODONE, ACETAMINOPHEN) (HYDROCODONE, A [Concomitant]
  4. PULMICORT (BUIDESONIDE) (BUIDESONIDE) [Concomitant]
  5. BYSTOLIC [Suspect]
     Indication: HYPERTENSION
     Dosage: 5 MG (5 MG, 1 IN 1 D), ORAL
     Route: 048
     Dates: start: 20110622, end: 20110628
  6. XANAX [Concomitant]
  7. SPIRIVA (TIOTROPIUM BROMIDE) (TIOTROPIUM BROMIDE) [Concomitant]

REACTIONS (1)
  - BRADYCARDIA [None]
